FAERS Safety Report 19514346 (Version 2)
Quarter: 2025Q2

REPORT INFORMATION
  Report Type: Spontaneous
  Country: DE (occurrence: DE)
  Receive Date: 20210709
  Receipt Date: 20250627
  Transmission Date: 20250716
  Serious: Yes (Hospitalization, Other)
  Sender: TAKEDA
  Company Number: DE-ROCHE-2852308

PATIENT
  Age: 49 Year
  Sex: Male
  Weight: 85 kg

DRUGS (41)
  1. KIOVIG [Suspect]
     Active Substance: HUMAN IMMUNOGLOBULIN G
     Indication: Immunoglobulins decreased
  2. PRIVIGEN [Suspect]
     Active Substance: HUMAN IMMUNOGLOBULIN G
     Indication: Chronic lymphocytic leukaemia
  3. TOPIRAMATE [Suspect]
     Active Substance: TOPIRAMATE
     Indication: Epilepsy
  4. CYCLOPHOSPHAMIDE [Suspect]
     Active Substance: CYCLOPHOSPHAMIDE
     Indication: Chronic lymphocytic leukaemia
  5. CYCLOPHOSPHAMIDE [Suspect]
     Active Substance: CYCLOPHOSPHAMIDE
     Dates: start: 20141118, end: 20150407
  6. CYCLOPHOSPHAMIDE [Suspect]
     Active Substance: CYCLOPHOSPHAMIDE
  7. CYCLOPHOSPHAMIDE [Suspect]
     Active Substance: CYCLOPHOSPHAMIDE
  8. CYCLOPHOSPHAMIDE [Suspect]
     Active Substance: CYCLOPHOSPHAMIDE
  9. CYCLOPHOSPHAMIDE [Suspect]
     Active Substance: CYCLOPHOSPHAMIDE
  10. CYCLOPHOSPHAMIDE [Suspect]
     Active Substance: CYCLOPHOSPHAMIDE
  11. URSODIOL [Suspect]
     Active Substance: URSODIOL
     Indication: Drug-induced liver injury
  12. VIMPAT [Suspect]
     Active Substance: LACOSAMIDE
     Indication: Epilepsy
  13. KEPPRA [Suspect]
     Active Substance: LEVETIRACETAM
     Indication: Epilepsy
  14. OBINUTUZUMAB [Suspect]
     Active Substance: OBINUTUZUMAB
     Indication: Chronic lymphocytic leukaemia
     Dates: start: 20141118, end: 20150407
  15. OBINUTUZUMAB [Suspect]
     Active Substance: OBINUTUZUMAB
  16. OBINUTUZUMAB [Suspect]
     Active Substance: OBINUTUZUMAB
  17. OBINUTUZUMAB [Suspect]
     Active Substance: OBINUTUZUMAB
  18. OBINUTUZUMAB [Suspect]
     Active Substance: OBINUTUZUMAB
  19. OBINUTUZUMAB [Suspect]
     Active Substance: OBINUTUZUMAB
  20. FLUDARABINE [Suspect]
     Active Substance: FLUDARABINE PHOSPHATE
     Indication: Chronic lymphocytic leukaemia
     Dates: start: 20141118, end: 20150407
  21. FLUDARABINE [Suspect]
     Active Substance: FLUDARABINE PHOSPHATE
  22. FLUDARABINE [Suspect]
     Active Substance: FLUDARABINE PHOSPHATE
  23. FLUDARABINE [Suspect]
     Active Substance: FLUDARABINE PHOSPHATE
  24. FLUDARABINE [Suspect]
     Active Substance: FLUDARABINE PHOSPHATE
  25. FLUDARABINE [Suspect]
     Active Substance: FLUDARABINE PHOSPHATE
  26. FLUDARABINE [Suspect]
     Active Substance: FLUDARABINE PHOSPHATE
  27. FLUDARABINE [Suspect]
     Active Substance: FLUDARABINE PHOSPHATE
  28. FLUDARABINE [Suspect]
     Active Substance: FLUDARABINE PHOSPHATE
  29. FLUDARABINE [Suspect]
     Active Substance: FLUDARABINE PHOSPHATE
  30. FLUDARABINE [Suspect]
     Active Substance: FLUDARABINE PHOSPHATE
  31. FLUDARABINE [Suspect]
     Active Substance: FLUDARABINE PHOSPHATE
  32. ACYCLOVIR [Suspect]
     Active Substance: ACYCLOVIR
     Indication: Varicella zoster virus infection
  33. CHOLECALCIFEROL [Concomitant]
     Active Substance: CHOLECALCIFEROL
     Dosage: 20000 INTERNATIONAL UNIT, QD
  34. CHOLECALCIFEROL [Concomitant]
     Active Substance: CHOLECALCIFEROL
  35. LEUCOVORIN CALCIUM [Concomitant]
     Active Substance: LEUCOVORIN CALCIUM
     Dosage: 15 MILLIGRAM, QD
  36. PANTOPRAZOLE SODIUM [Concomitant]
     Active Substance: PANTOPRAZOLE SODIUM
  37. Solu-decortin h [Concomitant]
  38. CIPROFLOXACIN [Concomitant]
     Active Substance: CIPROFLOXACIN
  39. ALLOPURINOL [Concomitant]
     Active Substance: ALLOPURINOL
     Dosage: 300 MILLIGRAM, QD
  40. AMPHOTERICIN B [Concomitant]
     Active Substance: AMPHOTERICIN B
  41. Jonosteril [Concomitant]

REACTIONS (29)
  - Skin cancer [Unknown]
  - Febrile infection [Recovered/Resolved]
  - Dehydration [Recovered/Resolved]
  - Back pain [Unknown]
  - Peroneal nerve palsy [Unknown]
  - Pollakiuria [Not Recovered/Not Resolved]
  - Urge incontinence [Not Recovered/Not Resolved]
  - Parosmia [Unknown]
  - Rhinorrhoea [Unknown]
  - Decreased appetite [Unknown]
  - Initial insomnia [Unknown]
  - Muscle twitching [Unknown]
  - Vitamin D deficiency [Unknown]
  - Benign prostatic hyperplasia [Unknown]
  - Bladder hypertrophy [Unknown]
  - Taste disorder [Unknown]
  - Eructation [Unknown]
  - Dry mouth [Unknown]
  - Eczema [Unknown]
  - Ear infection [Unknown]
  - Organic brain syndrome [Unknown]
  - Affective disorder [Unknown]
  - Pain [Unknown]
  - Osteoarthritis [Not Recovered/Not Resolved]
  - Pruritus [Unknown]
  - Eye irritation [Unknown]
  - Oedema peripheral [Unknown]
  - Depression [Unknown]
  - Adjustment disorder [Unknown]

NARRATIVE: CASE EVENT DATE: 20180101
